FAERS Safety Report 19660532 (Version 1)
Quarter: 2021Q3

REPORT INFORMATION
  Report Type: Spontaneous
  Country: US (occurrence: US)
  Receive Date: 20210805
  Receipt Date: 20210805
  Transmission Date: 20211014
  Serious: Yes (Other)
  Sender: FDA-Public Use
  Company Number: US-SA-2021SA258914

PATIENT
  Age: 81 Year
  Sex: Female

DRUGS (6)
  1. AFRIN [OXYMETAZOLINE] [Concomitant]
  2. VITAMINS NOS [Concomitant]
     Active Substance: VITAMINS
  3. ALBUTEROL [SALBUTAMOL] [Concomitant]
     Active Substance: ALBUTEROL
  4. DUPIXENT [Suspect]
     Active Substance: DUPILUMAB
     Indication: CHRONIC RHINOSINUSITIS WITH NASAL POLYPS
     Dosage: 300 MG, QOW
     Route: 058
     Dates: start: 202106
  5. DUPIXENT [Suspect]
     Active Substance: DUPILUMAB
     Indication: ASTHMA
  6. PROBIOTICS NOS [Concomitant]
     Active Substance: PROBIOTICS NOS

REACTIONS (17)
  - Balance disorder [Unknown]
  - Muscular weakness [Unknown]
  - Somnolence [Unknown]
  - Eosinophilic pneumonia [Unknown]
  - Facial pain [Unknown]
  - Ageusia [Unknown]
  - Dysarthria [Unknown]
  - Ear pain [Unknown]
  - Sleep deficit [Unknown]
  - Ear discomfort [Unknown]
  - Eye pruritus [Unknown]
  - Back pain [Unknown]
  - Toothache [Unknown]
  - Neck pain [Unknown]
  - Asthenia [Unknown]
  - Facial discomfort [Unknown]
  - Anosmia [Unknown]

NARRATIVE: CASE EVENT DATE: 20210730
